FAERS Safety Report 7305107-7 (Version None)
Quarter: 2011Q1

REPORT INFORMATION
  Report Type: 
  Country: None (occurrence: None)
  Receive Date: 20110222
  Receipt Date: 20110214
  Transmission Date: 20110831
  Serious: Yes (Hospitalization, Other)
  Sender: FDA-Public Use
  Company Number: BR-SANOFI-AVENTIS-2011SA009912

PATIENT
  Sex: Male
  Weight: 69 kg

DRUGS (3)
  1. LANTUS [Suspect]
     Indication: TYPE 1 DIABETES MELLITUS
     Route: 058
  2. AUTOPEN 24 [Suspect]
  3. NOVOLIN 70/30 [Concomitant]
     Indication: TYPE 1 DIABETES MELLITUS
     Dosage: ACCORDING TO GLYCEMIA
     Route: 058

REACTIONS (2)
  - CALCULUS BLADDER [None]
  - PAIN [None]
